FAERS Safety Report 20437967 (Version 3)
Quarter: 2023Q1

REPORT INFORMATION
  Report Type: Spontaneous
  Country: US (occurrence: US)
  Receive Date: 20220207
  Receipt Date: 20230106
  Transmission Date: 20230417
  Serious: No
  Sender: FDA-Public Use
  Company Number: US-PFIZER INC-202200150103

PATIENT
  Age: 66 Year
  Sex: Female

DRUGS (1)
  1. IBRANCE [Suspect]
     Active Substance: PALBOCICLIB
     Dosage: UNK
     Dates: start: 20210101

REACTIONS (6)
  - Fatigue [Recovered/Resolved]
  - Arthralgia [Unknown]
  - Alopecia [Unknown]
  - Dry skin [Unknown]
  - White blood cell count decreased [Unknown]
  - Blood test abnormal [Unknown]
